FAERS Safety Report 23003560 (Version 2)
Quarter: 2024Q1

REPORT INFORMATION
  Report Type: Spontaneous
  Country: CA (occurrence: CA)
  Receive Date: 20230928
  Receipt Date: 20240314
  Transmission Date: 20240409
  Serious: Yes (Other)
  Sender: FDA-Public Use
  Company Number: CA-FreseniusKabi-FK202315074

PATIENT
  Age: 42 Year
  Sex: Male
  Weight: 119 kg

DRUGS (18)
  1. ADALIMUMAB [Suspect]
     Active Substance: ADALIMUMAB\ISOPROPYL ALCOHOL
     Indication: Product used for unknown indication
     Dosage: FOA - SOLUTION SUBCUTANEOUS
     Route: 065
  2. METHOTREXATE [Suspect]
     Active Substance: METHOTREXATE
     Indication: Psoriasis
     Dosage: DURATION: 730
     Route: 065
  3. ACITRETIN [Suspect]
     Active Substance: ACITRETIN
     Indication: Product used for unknown indication
     Dosage: FOA: NOT SPECIFIED
     Route: 048
  4. ACITRETIN [Suspect]
     Active Substance: ACITRETIN
     Route: 048
  5. CIMZIA [Suspect]
     Active Substance: CERTOLIZUMAB PEGOL
     Indication: Product used for unknown indication
     Dosage: FOA - SOLUTION FOR INJECTION
     Route: 065
  6. HUMIRA [Suspect]
     Active Substance: ADALIMUMAB
     Indication: Product used for unknown indication
     Dosage: DURATION: 365?SOLUTION SUBCUTANEOUS
     Route: 058
  7. LEFLUNOMIDE [Suspect]
     Active Substance: LEFLUNOMIDE
     Indication: Product used for unknown indication
     Dosage: NOT SPECIFIED
     Route: 065
  8. MYFORTIC [Suspect]
     Active Substance: MYCOPHENOLATE SODIUM
     Indication: Product used for unknown indication
     Dosage: ENTERIC COATED TABLET
     Route: 065
  9. STELARA [Suspect]
     Active Substance: USTEKINUMAB
     Indication: Product used for unknown indication
     Dosage: SOLUTION SUBCUTANEOUS
     Route: 065
  10. STELARA [Suspect]
     Active Substance: USTEKINUMAB
     Dosage: SOLUTION
     Route: 058
  11. BETAMETHASONE DIPROPIONATE\CALCIPOTRIENE [Concomitant]
     Active Substance: BETAMETHASONE DIPROPIONATE\CALCIPOTRIENE
     Indication: Product used for unknown indication
     Route: 065
  12. CERTOLIZUMAB PEGOL [Concomitant]
     Active Substance: CERTOLIZUMAB PEGOL
     Indication: Product used for unknown indication
     Dosage: 2 REGIMEN
     Route: 058
  13. MOMETASONE FUROATE\SALICYLIC ACID [Concomitant]
     Active Substance: MOMETASONE FUROATE\SALICYLIC ACID
     Indication: Product used for unknown indication
     Route: 061
  14. NAPROXEN [Concomitant]
     Active Substance: NAPROXEN
     Indication: Product used for unknown indication
     Dosage: NOT SPECIFIED
     Route: 048
  15. OMEPRAZOLE MAGNESIUM [Concomitant]
     Active Substance: OMEPRAZOLE MAGNESIUM
     Indication: Product used for unknown indication
     Route: 048
  16. OMEPRAZOLE SODIUM [Concomitant]
     Active Substance: OMEPRAZOLE SODIUM
     Indication: Product used for unknown indication
     Route: 065
  17. PERMETHRIN [Concomitant]
     Active Substance: PERMETHRIN
     Indication: Product used for unknown indication
     Route: 061
  18. SULFASALAZINE [Concomitant]
     Active Substance: SULFASALAZINE
     Indication: Product used for unknown indication
     Dosage: NOT SPECIFIED
     Route: 048

REACTIONS (12)
  - Abdominal discomfort [Not Recovered/Not Resolved]
  - Diarrhoea [Not Recovered/Not Resolved]
  - Drug ineffective [Not Recovered/Not Resolved]
  - Dry skin [Not Recovered/Not Resolved]
  - Fatigue [Not Recovered/Not Resolved]
  - Gastrointestinal disorder [Not Recovered/Not Resolved]
  - Hidradenitis [Not Recovered/Not Resolved]
  - Nausea [Not Recovered/Not Resolved]
  - Psoriasis [Not Recovered/Not Resolved]
  - Psoriatic arthropathy [Not Recovered/Not Resolved]
  - Skin haemorrhage [Not Recovered/Not Resolved]
  - Treatment failure [Not Recovered/Not Resolved]
